FAERS Safety Report 7430962-X (Version None)
Quarter: 2011Q2

REPORT INFORMATION
  Report Type: 
  Country: None (occurrence: None)
  Receive Date: 20110421
  Receipt Date: 20110412
  Transmission Date: 20111010
  Serious: Yes (Other)
  Sender: FDA-Public Use
  Company Number: PHHY2011DE30348

PATIENT
  Age: 22 Year
  Sex: Female

DRUGS (10)
  1. DESOGESTREL [Concomitant]
     Indication: ORAL CONTRACEPTION
     Dosage: UNK UKN, UNK
  2. PREDNISOLONE [Suspect]
     Dosage: 10 MG
  3. VITAMIN D [Concomitant]
     Dosage: UNK UKN, UNK
  4. AZATHIOPRINE [Concomitant]
     Dosage: 75 MG
  5. CALCIUM SUPPLEMENTATION [Concomitant]
     Dosage: UNK UKN, UNK
  6. BUDESONIDE [Suspect]
     Dosage: 09 MG
  7. PREDNISOLONE [Suspect]
     Dosage: 1.3 MG/KG BODY WEIGHT
  8. PREDNISOLONE [Suspect]
     Dosage: 15 MG
  9. PREDNISOLONE [Suspect]
     Dosage: 20 MG
  10. PREDNISOLONE [Suspect]
     Dosage: 5 MG

REACTIONS (11)
  - FATIGUE [None]
  - HIRSUTISM [None]
  - AUTOIMMUNE HEPATITIS [None]
  - TRANSAMINASES INCREASED [None]
  - HEPATIC NECROSIS [None]
  - WEIGHT INCREASED [None]
  - AGITATION [None]
  - HEPATIC FIBROSIS [None]
  - SLEEP DISORDER [None]
  - SWELLING FACE [None]
  - ALOPECIA [None]
